FAERS Safety Report 5805864-2 (Version None)
Quarter: 2008Q3

REPORT INFORMATION
  Report Type: 
  Country: None (occurrence: None)
  Receive Date: 20080710
  Receipt Date: 20080709
  Transmission Date: 20090109
  Serious: Yes (Hospitalization)
  Sender: FDA-Public Use
  Company Number: KR-BRISTOL-MYERS SQUIBB COMPANY-14254718

PATIENT
  Age: 63 Year
  Sex: Male

DRUGS (2)
  1. CARBOPLATIN [Suspect]
     Indication: NON-SMALL CELL LUNG CANCER
     Dosage: THERAPY STARTED ON 07-APR-2008 AND ONGOING.
     Route: 042
     Dates: start: 20080609, end: 20080609
  2. DOCETAXEL [Suspect]
     Indication: NON-SMALL CELL LUNG CANCER
     Dosage: THERAPY STARTED ON 07-APR-2008 AND ONGOING.
     Route: 042
     Dates: start: 20080609, end: 20080609

REACTIONS (2)
  - ASTHENIA [None]
  - HYPOPHAGIA [None]
